FAERS Safety Report 19828223 (Version 2)
Quarter: 2021Q4

REPORT INFORMATION
  Report Type: Spontaneous
  Country: US (occurrence: US)
  Receive Date: 20210914
  Receipt Date: 20211001
  Transmission Date: 20220303
  Serious: Yes (Other)
  Sender: FDA-Public Use
  Company Number: US-009507513-2109USA002847

PATIENT
  Age: 8 Decade
  Sex: Female

DRUGS (2)
  1. KEYTRUDA [Suspect]
     Active Substance: PEMBROLIZUMAB
     Indication: Malignant melanoma stage III
     Dosage: 1 DOSE
  2. INTRON A [Suspect]
     Active Substance: INTERFERON ALFA-2B
     Indication: Malignant melanoma stage III
     Dosage: 1 DOSE

REACTIONS (1)
  - Arteriospasm coronary [Recovered/Resolved]
